FAERS Safety Report 15334193 (Version 1)
Quarter: 2018Q3

REPORT INFORMATION
  Report Type: Spontaneous
  Country: US (occurrence: US)
  Receive Date: 20180827
  Receipt Date: 20180827
  Transmission Date: 20181010
  Serious: Yes (Hospitalization)
  Sender: FDA-Public Use
  Company Number: None

PATIENT
  Age: 51 Year
  Sex: Male

DRUGS (2)
  1. AMLODIPINE [Concomitant]
     Active Substance: AMLODIPINE BESYLATE
  2. SENSIPAR [Suspect]
     Active Substance: CINACALCET HYDROCHLORIDE
     Indication: END STAGE RENAL DISEASE
     Route: 048
     Dates: start: 20161104

REACTIONS (4)
  - Lower gastrointestinal haemorrhage [None]
  - Cardiac disorder [None]
  - Haemoglobin decreased [None]
  - Therapy cessation [None]

NARRATIVE: CASE EVENT DATE: 20180815
